FAERS Safety Report 9116624 (Version 1)
Quarter: 2013Q1

REPORT INFORMATION
  Report Type: Spontaneous
  Country: US (occurrence: US)
  Receive Date: 20130225
  Receipt Date: 20130225
  Transmission Date: 20140127
  Serious: Yes (Other)
  Sender: FDA-Public Use
  Company Number: US-ROCHE-1194583

PATIENT
  Sex: Female

DRUGS (3)
  1. PEGASYS [Suspect]
     Indication: HEPATITIS C
     Route: 058
     Dates: start: 20121026
  2. RIBAVIRIN [Suspect]
     Indication: HEPATITIS C
     Route: 048
     Dates: start: 20121026
  3. TELAPREVIR [Suspect]
     Indication: HEPATITIS C
     Route: 065
     Dates: start: 20121026

REACTIONS (10)
  - Gait disturbance [Unknown]
  - Headache [Unknown]
  - Pruritus [Recovered/Resolved]
  - Insomnia [Unknown]
  - Depression [Unknown]
  - Crying [Unknown]
  - Screaming [Unknown]
  - Pain [Unknown]
  - Pain in extremity [Unknown]
  - Dry skin [Unknown]
